FAERS Safety Report 7691149-9 (Version None)
Quarter: 2011Q3

REPORT INFORMATION
  Report Type: 
  Country: None (occurrence: None)
  Receive Date: 20110818
  Receipt Date: 20110811
  Transmission Date: 20111222
  Serious: Yes (Disabling, Other)
  Sender: FDA-Public Use
  Company Number: CA-PFIZER INC-2011144913

PATIENT
  Age: 40 Year
  Sex: Female

DRUGS (3)
  1. CORTEF [Suspect]
     Indication: ADRENAL INSUFFICIENCY
     Dosage: 10 MG, UNK
     Route: 048
     Dates: start: 20110415
  2. CORTEF [Suspect]
     Dosage: UNK
     Dates: start: 20110601
  3. CORTEF [Suspect]
     Dosage: 15 MG, UNK
     Route: 048
     Dates: start: 20100101

REACTIONS (2)
  - SYNCOPE [None]
  - HYPOTENSION [None]
